FAERS Safety Report 8926185 (Version 1)
Quarter: 2012Q4

REPORT INFORMATION
  Report Type: 
  Country: US (occurrence: US)
  Receive Date: 20121126
  Receipt Date: 20121126
  Transmission Date: 20130627
  Serious: Yes (Death, Other)
  Sender: FDA-Public Use
  Company Number: US-ASTRAZENECA-2012SE87746

PATIENT

DRUGS (2)
  1. SYMBICORT [Suspect]
     Dosage: TAKING TOO MANY PUFFS OF SYMBICORT, UNKNOWN FRQUENCY
     Route: 055
  2. DULERA [Suspect]
     Route: 065

REACTIONS (3)
  - Death [Fatal]
  - Intentional drug misuse [Unknown]
  - Overdose [Unknown]
